FAERS Safety Report 5484566-9 (Version None)
Quarter: 2007Q4

REPORT INFORMATION
  Report Type: 
  Country: None (occurrence: None)
  Receive Date: 20071012
  Receipt Date: 20071002
  Transmission Date: 20080405
  Serious: Yes (Other)
  Sender: FDA-Public Use
  Company Number: GB-PFIZER INC-2007075697

PATIENT
  Sex: Female
  Weight: 85.7 kg

DRUGS (14)
  1. CHAMPIX [Suspect]
     Indication: SMOKING CESSATION THERAPY
     Route: 048
  2. SALMETEROL XINAFOATE [Concomitant]
     Dosage: TEXT:2 PUFFS
     Route: 055
  3. BECLOMETHASONE DIPROPIONATE [Concomitant]
     Dosage: TEXT:2 PUFFS
     Route: 055
  4. TILDIEM [Concomitant]
     Route: 048
  5. TEMAZEPAM [Concomitant]
     Route: 048
  6. ACETYLSALICYLIC ACID [Concomitant]
     Route: 048
  7. GLYCERYL TRINITRATE [Concomitant]
  8. ATORVASTATIN CALCIUM [Concomitant]
     Route: 048
  9. ISOSORBIDE MONONITRATE [Concomitant]
     Route: 048
  10. SALBUTAMOL [Concomitant]
     Route: 055
  11. METFORMIN HYDROCHLORIDE [Concomitant]
     Route: 048
  12. FUROSEMIDE [Concomitant]
     Route: 048
  13. TIOTROPIUM [Concomitant]
     Route: 055
  14. AMOXICILLIN [Concomitant]
     Route: 048

REACTIONS (4)
  - ANXIETY [None]
  - BRONCHITIS [None]
  - ILL-DEFINED DISORDER [None]
  - MALAISE [None]
